FAERS Safety Report 10256493 (Version 2)
Quarter: 2014Q2

REPORT INFORMATION
  Report Type: Report from Study
  Country: FR (occurrence: FR)
  Receive Date: 20140624
  Receipt Date: 20140624
  Transmission Date: 20141212
  Serious: Yes (Hospitalization)
  Sender: FDA-Public Use
  Company Number: FR-JNJFOC-20130206758

PATIENT
  Age: 53 Year
  Sex: Female
  Weight: 67 kg

DRUGS (10)
  1. RIVAROXABAN [Suspect]
     Indication: THROMBOSIS PROPHYLAXIS
     Route: 065
     Dates: start: 20130104, end: 20130107
  2. RIVAROXABAN [Suspect]
     Indication: THROMBOSIS PROPHYLAXIS
     Route: 065
     Dates: start: 20130316
  3. RIVAROXABAN [Suspect]
     Indication: THROMBOSIS PROPHYLAXIS
     Route: 065
     Dates: start: 20130108, end: 20130114
  4. RIVAROXABAN [Suspect]
     Indication: THROMBOSIS PROPHYLAXIS
     Route: 065
     Dates: start: 20130223, end: 20130315
  5. RIVAROXABAN [Suspect]
     Indication: DEEP VEIN THROMBOSIS
     Route: 065
     Dates: start: 20130223, end: 20130315
  6. RIVAROXABAN [Suspect]
     Indication: DEEP VEIN THROMBOSIS
     Route: 065
     Dates: start: 20130316
  7. RIVAROXABAN [Suspect]
     Indication: DEEP VEIN THROMBOSIS
     Route: 065
     Dates: start: 20130104, end: 20130107
  8. RIVAROXABAN [Suspect]
     Indication: DEEP VEIN THROMBOSIS
     Route: 065
     Dates: start: 20130108, end: 20130114
  9. FONDAPARINUX [Concomitant]
     Dates: start: 20130115, end: 20130205
  10. HEPARIN [Concomitant]
     Dates: start: 20130206, end: 20130222

REACTIONS (3)
  - Metrorrhagia [Recovering/Resolving]
  - Hysterectomy [Recovered/Resolved]
  - Fibroma [Recovered/Resolved]
